FAERS Safety Report 8370852-1 (Version None)
Quarter: 2012Q2

REPORT INFORMATION
  Report Type: 
  Country: None (occurrence: None)
  Receive Date: 20120518
  Receipt Date: 20120311
  Transmission Date: 20120825
  Serious: No
  Sender: FDA-Public Use
  Company Number: US-ASTRAZENECA-2012SE17740

PATIENT
  Sex: Female

DRUGS (9)
  1. PRILOSEC OTC [Suspect]
     Route: 048
  2. PRILOSEC OTC [Suspect]
     Route: 048
  3. PRILOSEC OTC [Suspect]
     Route: 048
  4. PRILOSEC OTC [Suspect]
     Indication: ASTHENIA
     Route: 048
  5. PRILOSEC OTC [Suspect]
     Route: 048
  6. PRILOSEC OTC [Suspect]
     Route: 048
  7. PRILOSEC OTC [Suspect]
     Indication: NAUSEA
     Route: 048
  8. PRILOSEC OTC [Suspect]
     Indication: DECREASED APPETITE
     Route: 048
  9. PRILOSEC OTC [Suspect]
     Route: 048

REACTIONS (4)
  - DRUG INEFFECTIVE [None]
  - CHILLS [None]
  - MUSCLE SPASMS [None]
  - MYALGIA [None]
